FAERS Safety Report 14376259 (Version 1)
Quarter: 2018Q1

REPORT INFORMATION
  Report Type: Report from Study
  Country: US (occurrence: US)
  Receive Date: 20180111
  Receipt Date: 20180111
  Transmission Date: 20180509
  Serious: Yes (Hospitalization)
  Sender: FDA-Public Use
  Company Number: US-BAYER-2018-001536

PATIENT
  Age: 62 Year
  Sex: Female

DRUGS (1)
  1. STIVARGA [Suspect]
     Active Substance: REGORAFENIB
     Indication: CHOLANGIOCARCINOMA
     Dosage: 80 MG, QD
     Dates: start: 20171211, end: 20171226

REACTIONS (6)
  - Off label use [None]
  - Vomiting [Recovered/Resolved]
  - Headache [Recovered/Resolved]
  - Product use in unapproved indication [None]
  - Blood pressure increased [Recovered/Resolved]
  - Laboratory test abnormal [Recovered/Resolved]

NARRATIVE: CASE EVENT DATE: 20171212
